FAERS Safety Report 25651919 (Version 1)
Quarter: 2025Q3

REPORT INFORMATION
  Report Type: Spontaneous
  Country: CN (occurrence: CN)
  Receive Date: 20250806
  Receipt Date: 20250806
  Transmission Date: 20251021
  Serious: Yes (Life-Threatening, Other)
  Sender: MALLINCKRODT
  Company Number: CN-MALLINCKRODT-MNK202504722

PATIENT
  Sex: Female
  Weight: 1 kg

DRUGS (3)
  1. NITRIC OXIDE [Suspect]
     Active Substance: NITRIC OXIDE
     Indication: Pulmonary hypertension
     Route: 055
  2. PHENOBARBITAL [Concomitant]
     Active Substance: PHENOBARBITAL
  3. MIDAZOLAM [Concomitant]
     Active Substance: MIDAZOLAM

REACTIONS (8)
  - Cardio-respiratory arrest [Unknown]
  - Bronchopulmonary dysplasia [Unknown]
  - Pneumonia klebsiella [Unknown]
  - Pulmonary hypertensive crisis [Unknown]
  - Oxygen saturation decreased [Recovering/Resolving]
  - Atrial septal defect [Unknown]
  - Patent ductus arteriosus [Unknown]
  - Product use issue [Unknown]
